FAERS Safety Report 5398267-9 (Version None)
Quarter: 2007Q3

REPORT INFORMATION
  Report Type: 
  Country: None (occurrence: None)
  Receive Date: 20070726
  Receipt Date: 20070716
  Transmission Date: 20080115
  Serious: Yes (Other)
  Sender: FDA-Public Use
  Company Number: US-PFIZER INC-2007059383

PATIENT
  Sex: Male
  Weight: 120.45 kg

DRUGS (6)
  1. LIPITOR [Suspect]
     Indication: BLOOD CHOLESTEROL INCREASED
     Dates: start: 20070503, end: 20070510
  2. PIROXICAM [Concomitant]
  3. NEURONTIN [Concomitant]
  4. PROPRANOLOL [Concomitant]
  5. HYDROCHLOROTHIAZIDE [Concomitant]
  6. PREVACID [Concomitant]

REACTIONS (3)
  - INSOMNIA [None]
  - MYALGIA [None]
  - PAIN [None]
